FAERS Safety Report 17900618 (Version 1)
Quarter: 2020Q2

REPORT INFORMATION
  Report Type: Spontaneous
  Country: CA (occurrence: CA)
  Receive Date: 20200616
  Receipt Date: 20200616
  Transmission Date: 20200714
  Serious: Yes (Other)
  Sender: FDA-Public Use
  Company Number: CA-ROCHE-2621317

PATIENT
  Age: 66 Year
  Sex: Male

DRUGS (23)
  1. PROGRAF [Suspect]
     Active Substance: TACROLIMUS
     Route: 065
  2. RAPAMUNE [Concomitant]
     Active Substance: SIROLIMUS
     Route: 065
  3. CALCITRIOL. [Concomitant]
     Active Substance: CALCITRIOL
  4. WARFARIN [Concomitant]
     Active Substance: WARFARIN
  5. PLANTAGO SPP. [Concomitant]
  6. NEORAL [Suspect]
     Active Substance: CYCLOSPORINE
     Indication: PROPHYLAXIS AGAINST TRANSPLANT REJECTION
     Route: 065
  7. ADVAGRAF [Concomitant]
     Active Substance: TACROLIMUS
  8. ALLOPURINOL. [Concomitant]
     Active Substance: ALLOPURINOL
  9. NITROGLYCERIN. [Concomitant]
     Active Substance: NITROGLYCERIN
  10. EPOETIN ALFA [Concomitant]
     Active Substance: ERYTHROPOIETIN
  11. MYFORTIC [Suspect]
     Active Substance: MYCOPHENOLATE SODIUM
     Indication: PROPHYLAXIS AGAINST TRANSPLANT REJECTION
     Route: 065
  12. CANDESARTAN. [Concomitant]
     Active Substance: CANDESARTAN
  13. CALCIUM ACETATE. [Concomitant]
     Active Substance: CALCIUM ACETATE
  14. MYFORTIC [Suspect]
     Active Substance: MYCOPHENOLATE SODIUM
     Route: 065
  15. PROGRAF [Suspect]
     Active Substance: TACROLIMUS
     Indication: PROPHYLAXIS AGAINST TRANSPLANT REJECTION
     Route: 065
  16. AMLODIPINE [Concomitant]
     Active Substance: AMLODIPINE BESYLATE
  17. CELLCEPT [Suspect]
     Active Substance: MYCOPHENOLATE MOFETIL\MYCOPHENOLATE MOFETIL HYDROCHLORIDE
     Indication: PROPHYLAXIS AGAINST TRANSPLANT REJECTION
     Route: 065
  18. PROGRAF [Suspect]
     Active Substance: TACROLIMUS
     Dosage: 0.5 MG IN THE MORNING PLUS 1 MG IN THE EVENING
     Route: 065
  19. RAPAMUNE [Concomitant]
     Active Substance: SIROLIMUS
     Indication: PROPHYLAXIS AGAINST TRANSPLANT REJECTION
     Dosage: ONE DOSE
     Route: 065
  20. PREDNISONE. [Concomitant]
     Active Substance: PREDNISONE
     Indication: PROPHYLAXIS AGAINST TRANSPLANT REJECTION
     Dosage: TAPERED TO 2.5 MG DAILY OVER 6 WEEKS.
     Route: 065
  21. METOPROLOL. [Concomitant]
     Active Substance: METOPROLOL
  22. FERROUS FUMARATE [Concomitant]
     Active Substance: FERROUS FUMARATE
  23. VITAMIN C [Concomitant]
     Active Substance: ASCORBIC ACID

REACTIONS (1)
  - Gastrointestinal disorder [Unknown]
